FAERS Safety Report 6166145-3 (Version None)
Quarter: 2009Q2

REPORT INFORMATION
  Report Type: 
  Country: None (occurrence: None)
  Receive Date: 20090422
  Receipt Date: 20090422
  Transmission Date: 20091009
  Serious: No
  Sender: FDA-Public Use
  Company Number: None

PATIENT
  Sex: Female
  Weight: 105 kg

DRUGS (5)
  1. ZOMETA [Suspect]
     Dosage: 4 MG
  2. ADRIAMYCIN RDF [Concomitant]
  3. CYTOXAN [Concomitant]
  4. HERCEPTIN [Concomitant]
  5. TAXOTERE [Concomitant]

REACTIONS (1)
  - MYOCARDIAL INFARCTION [None]
